FAERS Safety Report 16318686 (Version 3)
Quarter: 2022Q1

REPORT INFORMATION
  Report Type: Spontaneous
  Country: DE (occurrence: DE)
  Receive Date: 20190516
  Receipt Date: 20220218
  Transmission Date: 20220423
  Serious: Yes (Hospitalization, Other)
  Sender: FDA-Public Use
  Company Number: None

PATIENT
  Age: 68 Year
  Sex: Female

DRUGS (5)
  1. BORTEZOMIB [Suspect]
     Active Substance: BORTEZOMIB
     Indication: Cardiac amyloidosis
     Dosage: UNK
     Route: 065
  2. BORTEZOMIB [Suspect]
     Active Substance: BORTEZOMIB
     Dosage: UNK
     Route: 040
  3. DEXAMETHASONE [Concomitant]
     Active Substance: DEXAMETHASONE
     Indication: Cardiac amyloidosis
     Dosage: UNK
     Route: 065
  4. DEXAMETHASONE [Concomitant]
     Active Substance: DEXAMETHASONE
     Dosage: UNK
     Route: 065
  5. CYCLOPHOSPHAMIDE [Concomitant]
     Active Substance: CYCLOPHOSPHAMIDE
     Indication: Cardiac amyloidosis
     Dosage: UNK
     Route: 065

REACTIONS (5)
  - Polyneuropathy [Recovering/Resolving]
  - Fluid retention [Recovering/Resolving]
  - Cardiac disorder [Recovering/Resolving]
  - Product use in unapproved indication [Unknown]
  - Off label use [Unknown]
